FAERS Safety Report 6095443-7 (Version None)
Quarter: 2009Q1

REPORT INFORMATION
  Report Type: 
  Country: None (occurrence: None)
  Receive Date: 20090227
  Receipt Date: 20080514
  Transmission Date: 20090719
  Serious: No
  Sender: FDA-Public Use
  Company Number: A0718960A

PATIENT
  Age: 32 Year
  Sex: Female
  Weight: 110 kg

DRUGS (6)
  1. LAMICTAL [Suspect]
     Dosage: 200MG PER DAY
     Route: 048
     Dates: start: 20080201
  2. SYNTHROID [Concomitant]
  3. CYTOMEL [Concomitant]
  4. ZYRTEC [Concomitant]
  5. ROXICODONE [Concomitant]
  6. BUPROPION HCL [Concomitant]

REACTIONS (5)
  - CRYING [None]
  - DIZZINESS [None]
  - DRUG INEFFECTIVE [None]
  - FORMICATION [None]
  - PRODUCT QUALITY ISSUE [None]
